FAERS Safety Report 6376300-5 (Version None)
Quarter: 2009Q3

REPORT INFORMATION
  Report Type: 
  Country: None (occurrence: None)
  Receive Date: 20090923
  Receipt Date: 20090923
  Transmission Date: 20100115
  Serious: Yes (Life-Threatening, Hospitalization)
  Sender: FDA-Public Use
  Company Number: None

PATIENT
  Age: 70 Year
  Sex: Male
  Weight: 80.1 kg

DRUGS (13)
  1. WINRHO [Suspect]
     Indication: PLATELET COUNT DECREASED
     Dosage: 6000MCG IV X1
     Route: 042
     Dates: start: 20090731
  2. APAP TAB [Concomitant]
  3. DIPHENHYDRAMINE HCL [Concomitant]
  4. HYDROCHLOROTHIAZIDE [Concomitant]
  5. INSULIN [Concomitant]
  6. LANTUS [Concomitant]
  7. IRBESARTAN [Concomitant]
  8. ISOSORBINE [Concomitant]
  9. MONONITRATE ER [Concomitant]
  10. SOLUMEBROL [Concomitant]
  11. SINVASTATIN [Concomitant]
  12. VERAPAMIL ER [Concomitant]
  13. PREDNISONE [Concomitant]

REACTIONS (5)
  - ACUTE MYOCARDIAL INFARCTION [None]
  - BLOOD PRESSURE DECREASED [None]
  - HAEMOGLOBIN DECREASED [None]
  - HAEMOLYSIS [None]
  - PLATELET COUNT DECREASED [None]
